FAERS Safety Report 7210398-7 (Version None)
Quarter: 2011Q1

REPORT INFORMATION
  Report Type: 
  Country: None (occurrence: None)
  Receive Date: 20110105
  Receipt Date: 20101228
  Transmission Date: 20110831
  Serious: Yes (Hospitalization)
  Sender: FDA-Public Use
  Company Number: PHHO2010CH17141

PATIENT
  Sex: Male

DRUGS (3)
  1. PREDNISONE [Suspect]
     Indication: RENAL TRANSPLANT
     Dosage: 7.5 MG / DAY
     Route: 048
     Dates: start: 20091114
  2. MYFORTIC [Suspect]
     Indication: RENAL TRANSPLANT
     Dosage: 720 MG, BID
     Route: 048
     Dates: start: 20091114
  3. CERTICAN [Suspect]
     Indication: RENAL TRANSPLANT
     Dosage: 3.5 MG / DAY
     Route: 048
     Dates: start: 20100216

REACTIONS (6)
  - ENTEROCOLITIS INFECTIOUS [None]
  - PROCTITIS [None]
  - DIARRHOEA [None]
  - RECTAL PERFORATION [None]
  - PYREXIA [None]
  - ULCER [None]
